FAERS Safety Report 18931446 (Version 2)
Quarter: 2021Q1

REPORT INFORMATION
  Report Type: Report from Study
  Country: FR (occurrence: FR)
  Receive Date: 20210223
  Receipt Date: 20210301
  Transmission Date: 20210420
  Serious: Yes (Hospitalization, Other)
  Sender: FDA-Public Use
  Company Number: FR-GILEAD-2021-0518335

PATIENT
  Age: 48 Year
  Sex: Male
  Weight: 75 kg

DRUGS (6)
  1. EBASTINE [Concomitant]
     Active Substance: EBASTINE
     Dosage: 10 MG
  2. BICTEGRAVIR W/EMTRICITABINE/TENOFOVIR ALAFENAMIDE [Suspect]
     Active Substance: BICTEGRAVIR\EMTRICITABINE\TENOFOVIR ALAFENAMIDE
     Indication: HIV INFECTION
     Dosage: 1 DOSAGE FORM, QD
     Route: 065
     Dates: start: 20200909
  3. SEROPLEX [Concomitant]
     Active Substance: ESCITALOPRAM OXALATE
     Dosage: 20 MG
  4. HYDROCORTISONE BUTYRATE. [Concomitant]
     Active Substance: HYDROCORTISONE BUTYRATE
     Dosage: UNK
     Dates: start: 20200909
  5. DIAZEPAM. [Concomitant]
     Active Substance: DIAZEPAM
     Dosage: 5 MG, TID
  6. MIANSERIN [Concomitant]
     Active Substance: MIANSERIN
     Dosage: 30 MG

REACTIONS (13)
  - Vomiting [Recovered/Resolved]
  - Dermo-hypodermitis [Recovered/Resolved]
  - Mitral valve prolapse [Not Recovered/Not Resolved]
  - Pain [Unknown]
  - Diarrhoea [Recovered/Resolved]
  - Colitis [Recovered/Resolved]
  - Gastroenteritis Escherichia coli [Recovered/Resolved]
  - Pruritus [Unknown]
  - Pain [Unknown]
  - Nausea [Unknown]
  - Pyrexia [Recovered/Resolved]
  - Heart valve incompetence [Not Recovered/Not Resolved]
  - Chills [Unknown]

NARRATIVE: CASE EVENT DATE: 20201027
